FAERS Safety Report 7168284-7 (Version None)
Quarter: 2010Q4

REPORT INFORMATION
  Report Type: 
  Country: None (occurrence: None)
  Receive Date: 20101216
  Receipt Date: 20101210
  Transmission Date: 20110411
  Serious: Yes (Hospitalization)
  Sender: FDA-Public Use
  Company Number: AU-ABBOTT-10P-008-0690714-00

PATIENT
  Age: 60 Year
  Sex: Female

DRUGS (2)
  1. CLARITHROMYCIN [Suspect]
     Indication: PRODUCT USED FOR UNKNOWN INDICATION
     Dosage: DAILY DOSE: 500MG
     Dates: start: 20100118, end: 20100206
  2. VYTORIN [Interacting]
     Indication: PRODUCT USED FOR UNKNOWN INDICATION
     Dates: end: 20100208

REACTIONS (8)
  - ALANINE AMINOTRANSFERASE INCREASED [None]
  - BACK PAIN [None]
  - BLOOD CREATINE PHOSPHOKINASE INCREASED [None]
  - BLOOD LACTATE DEHYDROGENASE INCREASED [None]
  - FATIGUE [None]
  - GROIN PAIN [None]
  - MYALGIA [None]
  - PAIN IN EXTREMITY [None]
